FAERS Safety Report 4470799-7 (Version None)
Quarter: 2004Q4

REPORT INFORMATION
  Report Type: 
  Country: None (occurrence: None)
  Receive Date: 20041011
  Receipt Date: 20040305
  Transmission Date: 20050328
  Serious: Yes (Hospitalization)
  Sender: FDA-Public Use
  Company Number: JP-SOLVAY-00304000625

PATIENT
  Age: 3627 Day
  Sex: Male
  Weight: 38 kg

DRUGS (5)
  1. LUVOX [Suspect]
     Indication: ANXIETY
     Dosage: DAILY DOSE: 75 MG. FREQUENCY:UNKNOWN
     Route: 048
     Dates: start: 20031021, end: 20040203
  2. SOLANAX [Suspect]
     Indication: ANXIETY
     Dosage: DAILY DOSE: 0.8 MG. FREQUENCY:UNKNOWN
     Route: 048
     Dates: start: 20031018, end: 20040203
  3. SERENE [Suspect]
     Indication: ANXIETY
     Dosage: DAILY DOSE: 3 MG. FREQUENCY:UNKNOWN
     Route: 048
     Dates: start: 20031018, end: 20040203
  4. NEULEPTIL [Suspect]
     Indication: ABNORMAL BEHAVIOUR
     Dosage: DAILY DOSE: 5 MG. FREQUENCY:UNKNOWN
     Route: 048
     Dates: start: 20040127, end: 20040203
  5. TEGRETOL [Suspect]
     Indication: EXCITABILITY
     Dosage: DAILY DOSE: 200 MG. FREQUENCY:UNKNOWN
     Route: 048
     Dates: start: 20040106, end: 20040201

REACTIONS (11)
  - ALANINE AMINOTRANSFERASE INCREASED [None]
  - ASPARTATE AMINOTRANSFERASE INCREASED [None]
  - BLOOD ALKALINE PHOSPHATASE INCREASED [None]
  - BLOOD LACTATE DEHYDROGENASE INCREASED [None]
  - DRUG ERUPTION [None]
  - GAMMA-GLUTAMYLTRANSFERASE INCREASED [None]
  - HYPERSENSITIVITY [None]
  - LYMPHOCYTE COUNT INCREASED [None]
  - LYMPHOCYTE STIMULATION TEST POSITIVE [None]
  - PYREXIA [None]
  - SKIN HYPERPIGMENTATION [None]
